FAERS Safety Report 5292983-5 (Version None)
Quarter: 2007Q2

REPORT INFORMATION
  Report Type: 
  Country: None (occurrence: None)
  Receive Date: 20070404
  Receipt Date: 20070326
  Transmission Date: 20071010
  Serious: Yes (Other)
  Sender: FDA-Public Use
  Company Number: 2007BI002730

PATIENT
  Sex: Female

DRUGS (13)
  1. NATALIZUMAB [Suspect]
     Indication: MULTIPLE SCLEROSIS
     Dosage: 300 MG; QM; IV
     Route: 042
     Dates: start: 20060919, end: 20060919
  2. NATALIZUMAB [Suspect]
     Indication: MULTIPLE SCLEROSIS
     Dosage: 300 MG; QM; IV
     Route: 042
     Dates: start: 20070206
  3. NEURONTIN [Concomitant]
  4. DITROPAN XL [Concomitant]
  5. BACLOFEN [Concomitant]
  6. ZANAFLEX [Concomitant]
  7. PROPRANOLOL [Concomitant]
  8. ACIPHEX [Concomitant]
  9. TRAMADOL HCL [Concomitant]
  10. WELLBUTRIN XL [Concomitant]
  11. FLOMAX [Concomitant]
  12. CYPROHEPTADINE HCL [Concomitant]
  13. PHENAZOPYRIDINE HCL TAB [Concomitant]

REACTIONS (3)
  - MULTIPLE SCLEROSIS RELAPSE [None]
  - PERICARDIAL EFFUSION [None]
  - URINARY TRACT INFECTION [None]
